FAERS Safety Report 4360914-8 (Version None)
Quarter: 2004Q2

REPORT INFORMATION
  Report Type: 
  Country: None (occurrence: None)
  Receive Date: 20040517
  Receipt Date: 20040326
  Transmission Date: 20050107
  Serious: Yes (Death, Life-Threatening, Hospitalization)
  Sender: FDA-Public Use
  Company Number: 2003-BP-07184PF

PATIENT
  Sex: Male

DRUGS (4)
  1. SPIRIVA [Suspect]
     Indication: CHRONIC OBSTRUCTIVE AIRWAYS DISEASE
     Dosage: NR (18 MCG, 1 PUFF DAILY); IH
     Route: 055
  2. VACCINE AGAINST PNEUMOCOCCUS (NR) [Suspect]
     Dosage: NR (NR); NR
     Dates: start: 20030718, end: 20030718
  3. COMBIVENT [Concomitant]
  4. CORTICIODS (NR) [Concomitant]

REACTIONS (2)
  - BRONCHOSPASM [None]
  - RESPIRATORY ARREST [None]
